FAERS Safety Report 9611834 (Version 10)
Quarter: 2016Q3

REPORT INFORMATION
  Report Type: Report from Study
  Country: JP (occurrence: JP)
  Receive Date: 20131010
  Receipt Date: 20160819
  Transmission Date: 20161109
  Serious: Yes (Hospitalization, Other)
  Sender: FDA-Public Use
  Company Number: PHHY2013JP045972

PATIENT
  Age: 78 Year
  Sex: Female
  Weight: 55.2 kg

DRUGS (13)
  1. SANDOSTATIN LAR DEPOT [Suspect]
     Active Substance: OCTREOTIDE ACETATE
     Indication: NEUROENDOCRINE TUMOUR
     Route: 030
     Dates: start: 20120207, end: 20120305
  2. VALSARTAN. [Concomitant]
     Active Substance: VALSARTAN
     Indication: PRODUCT USED FOR UNKNOWN INDICATION
     Dosage: 160 MG, QD
     Route: 065
  3. AFINITOR [Suspect]
     Active Substance: EVEROLIMUS
     Indication: NEUROENDOCRINE TUMOUR
     Dosage: 10 MG, QD
     Route: 048
     Dates: start: 20120409, end: 20120715
  4. AFINITOR [Suspect]
     Active Substance: EVEROLIMUS
     Dosage: UNK
     Route: 048
  5. SPIRONOLACTONE. [Concomitant]
     Active Substance: SPIRONOLACTONE
     Indication: PRODUCT USED FOR UNKNOWN INDICATION
     Dosage: 50 MG, QD
     Route: 065
  6. NIFEDIPINE. [Concomitant]
     Active Substance: NIFEDIPINE
     Indication: PRODUCT USED FOR UNKNOWN INDICATION
     Dosage: 40 MG, QD
     Route: 065
  7. AFINITOR [Suspect]
     Active Substance: EVEROLIMUS
     Dosage: 5 MG, QD
     Route: 048
     Dates: start: 20121101, end: 20121130
  8. NOVORAPID [Concomitant]
     Active Substance: INSULIN ASPART
     Indication: TYPE 2 DIABETES MELLITUS
     Dosage: 30 IU, UNK
     Route: 058
     Dates: start: 20120609
  9. INSULIN DETEMIR [Concomitant]
     Active Substance: INSULIN DETEMIR
     Indication: PRODUCT USED FOR UNKNOWN INDICATION
     Route: 065
  10. LEVEMIR [Concomitant]
     Active Substance: INSULIN DETEMIR
     Indication: TYPE 2 DIABETES MELLITUS
     Dosage: 22 IU, UNK
     Route: 058
     Dates: start: 20120718
  11. NOVORAPID [Concomitant]
     Active Substance: INSULIN ASPART
     Dosage: 10 IU, UNK
     Route: 058
     Dates: start: 20120609
  12. POTASSIUM ASPARTATE [Concomitant]
     Active Substance: POTASSIUM ASPARTATE
     Indication: PRODUCT USED FOR UNKNOWN INDICATION
     Dosage: 675 MG, QD
     Route: 065
  13. GLIMEPIRIDE. [Concomitant]
     Active Substance: GLIMEPIRIDE
     Indication: PRODUCT USED FOR UNKNOWN INDICATION
     Route: 065

REACTIONS (17)
  - Oedema peripheral [Not Recovered/Not Resolved]
  - Cushing^s syndrome [Not Recovered/Not Resolved]
  - Metastasis [Unknown]
  - Hepatic function abnormal [Recovered/Resolved]
  - Hyperglycaemia [Not Recovered/Not Resolved]
  - Hypokalaemia [Not Recovered/Not Resolved]
  - Decreased appetite [Recovering/Resolving]
  - Cushingoid [Unknown]
  - Pneumonia bacterial [Recovering/Resolving]
  - Lymphocyte count decreased [Not Recovered/Not Resolved]
  - Fluid retention [Unknown]
  - Drug ineffective [Unknown]
  - Nausea [Recovering/Resolving]
  - Pleural effusion [Not Recovered/Not Resolved]
  - General physical health deterioration [Unknown]
  - Protein urine present [Recovered/Resolved]
  - Malignant neoplasm progression [Unknown]

NARRATIVE: CASE EVENT DATE: 20120521
